FAERS Safety Report 18243365 (Version 3)
Quarter: 2020Q4

REPORT INFORMATION
  Report Type: Report from Study
  Country: US (occurrence: US)
  Receive Date: 20200908
  Receipt Date: 20201106
  Transmission Date: 20210113
  Serious: Yes (Other)
  Sender: FDA-Public Use
  Company Number: US-JAZZ-2020-US-004622

PATIENT
  Sex: Male

DRUGS (26)
  1. XYREM [Suspect]
     Active Substance: SODIUM OXYBATE
     Indication: CATAPLEXY
     Dosage: DOSE ADJUSTMENT
     Route: 048
     Dates: start: 202002, end: 202003
  2. TERBINAFINE HCL [Concomitant]
     Active Substance: TERBINAFINE HYDROCHLORIDE
  3. VENTOLIN HFA [Concomitant]
     Active Substance: ALBUTEROL SULFATE
  4. SUNOSI [Concomitant]
     Active Substance: SOLRIAMFETOL
     Dosage: 150 MILLIGRAM, QD
     Route: 065
     Dates: start: 202001
  5. TYLENOL WITH CODEINE [Concomitant]
     Active Substance: ACETAMINOPHEN\CODEINE PHOSPHATE
  6. MODAFINIL. [Concomitant]
     Active Substance: MODAFINIL
     Indication: PRODUCT USED FOR UNKNOWN INDICATION
  7. SUNOSI [Concomitant]
     Active Substance: SOLRIAMFETOL
     Indication: PRODUCT USED FOR UNKNOWN INDICATION
     Dosage: 75 MG, QD
     Route: 065
  8. HYOSCYAMINE. [Concomitant]
     Active Substance: HYOSCYAMINE
  9. DIGESTIVE ENZYME [Concomitant]
     Active Substance: UNSPECIFIED INGREDIENT
  10. SILDENAFIL. [Concomitant]
     Active Substance: SILDENAFIL
  11. TESTOSTERONE CYPIONATE. [Concomitant]
     Active Substance: TESTOSTERONE CYPIONATE
  12. VITAMIN D3 [Concomitant]
     Active Substance: CHOLECALCIFEROL
  13. XYREM [Suspect]
     Active Substance: SODIUM OXYBATE
     Indication: NARCOLEPSY
     Dosage: 2.5 GRAM, BID
     Route: 048
     Dates: start: 202001, end: 202001
  14. PRAMIPEXOLE. [Suspect]
     Active Substance: PRAMIPEXOLE
  15. CALCIUM CITRATE/VITAMIN D [Concomitant]
     Active Substance: CALCIUM CITRATE\VITAMIN D
  16. ESCITALOPRAM [Concomitant]
     Active Substance: ESCITALOPRAM OXALATE
  17. XYREM [Suspect]
     Active Substance: SODIUM OXYBATE
     Dosage: 4 GRAM, BID
     Route: 048
     Dates: start: 202003
  18. TAMSULOSIN HCL [Concomitant]
     Active Substance: TAMSULOSIN HYDROCHLORIDE
  19. CIPROFLOXACIN HCL [Concomitant]
     Active Substance: CIPROFLOXACIN HYDROCHLORIDE
  20. VITAMIN B-1 [Concomitant]
     Active Substance: THIAMINE HYDROCHLORIDE
  21. BIOTINE [BIOTIN] [Concomitant]
     Active Substance: BIOTIN
     Indication: PRODUCT USED FOR UNKNOWN INDICATION
  22. CICLOPIROX. [Concomitant]
     Active Substance: CICLOPIROX
  23. CIPRO [Concomitant]
     Active Substance: CIPROFLOXACIN HYDROCHLORIDE
  24. VITAMIN A [RETINOL ACETATE] [Concomitant]
  25. VITAMIN B12 [Concomitant]
     Active Substance: CYANOCOBALAMIN
  26. ARMODAFINIL. [Concomitant]
     Active Substance: ARMODAFINIL
     Indication: PRODUCT USED FOR UNKNOWN INDICATION

REACTIONS (4)
  - Tardive dyskinesia [Unknown]
  - Dry mouth [Unknown]
  - Abnormal dreams [Unknown]
  - Abnormal sleep-related event [Unknown]
